FAERS Safety Report 4507695-2 (Version None)
Quarter: 2004Q4

REPORT INFORMATION
  Report Type: 
  Country: None (occurrence: None)
  Receive Date: 20040928
  Receipt Date: 20040617
  Transmission Date: 20050328
  Serious: No
  Sender: FDA-Public Use
  Company Number: 04P-163-0263989-00

PATIENT
  Age: 68 Year
  Sex: Female
  Weight: 90.7194 kg

DRUGS (8)
  1. HUMIRA [Suspect]
     Indication: RHEUMATOID ARTHRITIS
     Dosage: 40 MG, SUBCUTANEOUS
     Route: 058
     Dates: start: 20040401
  2. PREDNISONE [Concomitant]
  3. GLYBURIDE [Concomitant]
  4. LEVOTHYROXINE SODIUM [Concomitant]
  5. ENALAPRIL [Concomitant]
  6. METOPROLOL [Concomitant]
  7. HYDROCODONE [Concomitant]
  8. VITAMIN E [Concomitant]

REACTIONS (1)
  - INJECTION SITE BURNING [None]
